FAERS Safety Report 6770590-2 (Version None)
Quarter: 2010Q2

REPORT INFORMATION
  Report Type: 
  Country: None (occurrence: None)
  Receive Date: 20100615
  Receipt Date: 20100607
  Transmission Date: 20101027
  Serious: Yes (Disabling)
  Sender: FDA-Public Use
  Company Number: CA-ASTRAZENECA-2010SE27338

PATIENT
  Age: 61 Year
  Sex: Female
  Weight: 81.6 kg

DRUGS (4)
  1. CRESTOR [Suspect]
     Route: 048
  2. CRESTOR [Suspect]
     Route: 048
  3. NOVO-HYDRAZIDE [Concomitant]
  4. SYNTHROID [Concomitant]
     Route: 048

REACTIONS (6)
  - COUGH [None]
  - DYSTROPHIC CALCIFICATION [None]
  - HYPERHIDROSIS [None]
  - PAIN IN EXTREMITY [None]
  - PNEUMONIA BACTERIAL [None]
  - RASH PUSTULAR [None]
